APPROVED DRUG PRODUCT: ALPRAZOLAM
Active Ingredient: ALPRAZOLAM
Strength: 0.5MG
Dosage Form/Route: TABLET, EXTENDED RELEASE;ORAL
Application: A078449 | Product #001
Applicant: APOTEX INC
Approved: Nov 12, 2008 | RLD: No | RS: No | Type: DISCN